FAERS Safety Report 8846802 (Version 1)
Quarter: 2012Q4

REPORT INFORMATION
  Report Type: 
  Country: FR (occurrence: FR)
  Receive Date: 20121018
  Receipt Date: 20121018
  Transmission Date: 20130627
  Serious: Yes (Hospitalization, Other)
  Sender: FDA-Public Use
  Company Number: FR-ASTRAZENECA-2012SE78852

PATIENT
  Age: 31032 Day
  Sex: Male

DRUGS (2)
  1. CASODEX [Suspect]
     Route: 048
     Dates: end: 20120823
  2. CRESTOR [Suspect]
     Route: 048
     Dates: end: 20120823

REACTIONS (4)
  - Cholestasis [Unknown]
  - Confusional state [Unknown]
  - Hepatocellular injury [Unknown]
  - Ascites [Unknown]
